FAERS Safety Report 7206900-1 (Version None)
Quarter: 2010Q4

REPORT INFORMATION
  Report Type: 
  Country: None (occurrence: None)
  Receive Date: 20101221
  Receipt Date: 20101208
  Transmission Date: 20110411
  Serious: Yes (Other)
  Sender: FDA-Public Use
  Company Number: 012220

PATIENT
  Sex: Male

DRUGS (9)
  1. BUSULFEX [Suspect]
     Indication: BONE MARROW TRANSPLANT
     Dosage: 16 MG/KG
  2. CYCLOPHOSPHAMINE (CYCLOPHOSPHAMINE) [Concomitant]
  3. ETOPOSIDE (ETOPOSIDE0 [Concomitant]
  4. ATG (ANTILYMPHOCYTE IMMUNOGLOBULIN (HORSE)) [Concomitant]
  5. CYCLOSPORINE [Concomitant]
  6. METHOTREXATE [Concomitant]
  7. ALEMTUZUMAB (ALEMITUZUMAB) [Concomitant]
  8. FLUDARABINE PHOSPHATE [Concomitant]
  9. TACROLIMUS [Concomitant]

REACTIONS (11)
  - ACUTE GRAFT VERSUS HOST DISEASE IN INTESTINE [None]
  - ACUTE GRAFT VERSUS HOST DISEASE IN SKIN [None]
  - BONE MARROW FAILURE [None]
  - BRONCHOPULMONARY ASPERGILLOSIS [None]
  - CATARACT [None]
  - DEVELOPMENTAL DELAY [None]
  - ENGRAFTMENT SYNDROME [None]
  - HYDROCEPHALUS [None]
  - MYELODYSPLASTIC SYNDROME [None]
  - OSTEOPENIA [None]
  - RESPIRATORY FAILURE [None]
